FAERS Safety Report 15242652 (Version 1)
Quarter: 2018Q3

REPORT INFORMATION
  Report Type: Spontaneous
  Country: GB (occurrence: GB)
  Receive Date: 20180806
  Receipt Date: 20180806
  Transmission Date: 20181010
  Serious: Yes (Hospitalization)
  Sender: FDA-Public Use
  Company Number: GB-TEVA-2018-GB-935257

PATIENT
  Age: 44 Year
  Sex: Male

DRUGS (2)
  1. INTERLEUKIN?2 [Suspect]
     Active Substance: ALDESLEUKIN
     Indication: GRAFT VERSUS HOST DISEASE
     Dosage: LOW DOSE
     Route: 065
     Dates: start: 201407, end: 201502
  2. MYCOPHENOLATE MOFETIL. [Suspect]
     Active Substance: MYCOPHENOLATE MOFETIL
     Indication: CHRONIC GRAFT VERSUS HOST DISEASE
     Dosage: 2 GRAM DAILY; 1 G, BID
     Route: 065

REACTIONS (5)
  - Pulseless electrical activity [Recovered/Resolved]
  - Lower respiratory tract infection [Recovered/Resolved]
  - Blood creatinine increased [Unknown]
  - Blood urea increased [Unknown]
  - Alanine aminotransferase increased [Unknown]

NARRATIVE: CASE EVENT DATE: 20140911
